FAERS Safety Report 5622030-4 (Version None)
Quarter: 2008Q1

REPORT INFORMATION
  Report Type: 
  Country: None (occurrence: None)
  Receive Date: 20080211
  Receipt Date: 20080131
  Transmission Date: 20080703
  Serious: Yes (Other)
  Sender: FDA-Public Use
  Company Number: US-JNJFOC-20080200431

PATIENT
  Sex: Female
  Weight: 65.77 kg

DRUGS (4)
  1. DURAGESIC-100 [Suspect]
     Indication: PAIN
     Route: 062
  2. FENTANYL TRANSDERMAL SYSTEM [Suspect]
     Indication: PAIN
     Route: 062
  3. LEVOTHYROXINE SODIUM [Concomitant]
     Indication: THYROID DISORDER
     Route: 048
  4. LEVISON [Concomitant]
     Indication: MUSCLE SPASMS
     Route: 060

REACTIONS (7)
  - AUTOIMMUNE THYROIDITIS [None]
  - DEVICE LEAKAGE [None]
  - EYE INFECTION [None]
  - LOSS OF CONSCIOUSNESS [None]
  - MUSCLE SPASMS [None]
  - MUSCULAR WEAKNESS [None]
  - PHARYNGEAL NEOPLASM [None]
